FAERS Safety Report 21220904 (Version 1)
Quarter: 2022Q3

REPORT INFORMATION
  Report Type: Spontaneous
  Country: AT (occurrence: AT)
  Receive Date: 20220817
  Receipt Date: 20220817
  Transmission Date: 20221026
  Serious: Yes (Hospitalization)
  Sender: FDA-Public Use
  Company Number: None

PATIENT
  Age: 76 Year
  Sex: Male

DRUGS (2)
  1. DOXAZOSIN [Suspect]
     Active Substance: DOXAZOSIN MESYLATE
     Indication: Product used for unknown indication
     Dosage: FORM STRENGTH : 4 MG  , UNIT DOSE : 1 DF  , FREQUENCY TIME : 1 DAY ,  THERAPY  END DATE : NASK
     Dates: start: 20220511
  2. DOXAZOSIN [Suspect]
     Active Substance: DOXAZOSIN MESYLATE
     Dosage: FORM STRENGTH : 4 MG  , UNIT DOSE : 1 DF  , FREQUENCY TIME : 12 HOURS ,  THERAPY  END DATE : NASK
     Dates: start: 20220526

REACTIONS (3)
  - Acute myocardial infarction [Recovered/Resolved]
  - Hypertensive crisis [Recovered/Resolved]
  - Troponin increased [Recovered/Resolved]

NARRATIVE: CASE EVENT DATE: 20220526
